FAERS Safety Report 18722347 (Version 1)
Quarter: 2021Q1

REPORT INFORMATION
  Report Type: Spontaneous
  Country: US (occurrence: US)
  Receive Date: 20210111
  Receipt Date: 20210111
  Transmission Date: 20210419
  Serious: No
  Sender: FDA-Public Use
  Company Number: US-BEH-2021126804

PATIENT
  Age: 37 Year
  Sex: Female

DRUGS (3)
  1. ICATIBANT [Concomitant]
     Active Substance: ICATIBANT ACETATE
  2. HAEGARDA [Suspect]
     Active Substance: HUMAN C1-ESTERASE INHIBITOR
     Indication: HEREDITARY ANGIOEDEMA
     Dosage: 4000 INTERNATIONAL UNIT (8 ML), BIW
     Route: 058
     Dates: start: 20200721
  3. HAEGARDA [Suspect]
     Active Substance: HUMAN C1-ESTERASE INHIBITOR
     Indication: PROPHYLAXIS
     Dosage: UNK
     Route: 058
     Dates: start: 202006

REACTIONS (3)
  - Infusion site swelling [Not Recovered/Not Resolved]
  - Infusion site erythema [Not Recovered/Not Resolved]
  - Infusion site reaction [Not Recovered/Not Resolved]

NARRATIVE: CASE EVENT DATE: 202011
